FAERS Safety Report 6675065-7 (Version None)
Quarter: 2010Q1

REPORT INFORMATION
  Report Type: 
  Country: None (occurrence: None)
  Receive Date: 20100331
  Receipt Date: 20090901
  Transmission Date: 20100710
  Serious: Yes (Other)
  Sender: FDA-Public Use
  Company Number: 2009248381

PATIENT
  Age: 85 Year
  Sex: Female

DRUGS (6)
  1. SUTENT [Suspect]
     Indication: RENAL CELL CARCINOMA
     Dosage: 50 MG, 1X/DAY, ORAL
     Route: 048
     Dates: start: 20090409, end: 20090518
  2. ASPIRIN [Concomitant]
  3. NORVASC [Concomitant]
  4. ALTACE [Concomitant]
  5. CLARINEX [Concomitant]
  6. LIPITOR [Concomitant]

REACTIONS (1)
  - THROMBOCYTOPENIA [None]
